FAERS Safety Report 6675682-4 (Version None)
Quarter: 2010Q2

REPORT INFORMATION
  Report Type: 
  Country: None (occurrence: None)
  Receive Date: 20100409
  Receipt Date: 20100330
  Transmission Date: 20101027
  Serious: Yes (Disabling, Other)
  Sender: FDA-Public Use
  Company Number: US-ELI_LILLY_AND_COMPANY-US201004000280

PATIENT
  Sex: Male

DRUGS (1)
  1. CYMBALTA [Suspect]
     Indication: DEPRESSION

REACTIONS (6)
  - DEPRESSION [None]
  - DISABILITY [None]
  - DRUG WITHDRAWAL SYNDROME [None]
  - MYOCARDIAL INFARCTION [None]
  - SUICIDAL IDEATION [None]
  - SURGERY [None]
